FAERS Safety Report 4785096-X (Version None)
Quarter: 2005Q3

REPORT INFORMATION
  Report Type: 
  Country: None (occurrence: None)
  Receive Date: 20050928
  Receipt Date: 20050915
  Transmission Date: 20060218
  Serious: Yes (Other)
  Sender: FDA-Public Use
  Company Number: 2005088388

PATIENT
  Age: 58 Year
  Sex: Male
  Weight: 96 kg

DRUGS (5)
  1. VIAGRA [Suspect]
     Indication: ERECTILE DYSFUNCTION
     Dosage: (AS NECESSSARY), ORAL
     Route: 048
     Dates: start: 20041201, end: 20050104
  2. NOVORAPID (INSULIN ASPART) [Concomitant]
  3. METFORMIN HCL [Concomitant]
  4. ACTOS [Concomitant]
  5. LOCHOL (FLUVASTATIN SODIUM [Concomitant]

REACTIONS (3)
  - COAGULOPATHY [None]
  - VISUAL ACUITY REDUCED [None]
  - VITREOUS HAEMORRHAGE [None]
